FAERS Safety Report 18310205 (Version 1)
Quarter: 2020Q3

REPORT INFORMATION
  Report Type: Spontaneous
  Country: GB (occurrence: GB)
  Receive Date: 20200925
  Receipt Date: 20200925
  Transmission Date: 20201103
  Serious: Yes (Life-Threatening)
  Sender: FDA-Public Use
  Company Number: GB-009507513-2009GBR009173

PATIENT
  Age: 72 Year
  Sex: Female
  Weight: 105 kg

DRUGS (2)
  1. PEMBROLIZUMAB. [Suspect]
     Active Substance: PEMBROLIZUMAB
     Indication: MALIGNANT MELANOMA
     Route: 042
     Dates: start: 201907, end: 20200305
  2. VALPROATE SODIUM. [Concomitant]
     Active Substance: VALPROATE SODIUM

REACTIONS (3)
  - Squamous cell carcinoma of the vulva [Not Recovered/Not Resolved]
  - Pain [Unknown]
  - Pulmonary sarcoidosis [Not Recovered/Not Resolved]
